FAERS Safety Report 7099972-9 (Version None)
Quarter: 2010Q4

REPORT INFORMATION
  Report Type: 
  Country: None (occurrence: None)
  Receive Date: 20101112
  Receipt Date: 20101103
  Transmission Date: 20110411
  Serious: Yes (Other)
  Sender: FDA-Public Use
  Company Number: BR-BAYER-201020629LA

PATIENT
  Age: 42 Year
  Sex: Male
  Weight: 60 kg

DRUGS (2)
  1. CIPRO [Suspect]
     Indication: POST PROCEDURAL SWELLING
     Dosage: UNIT DOSE: 500 MG
     Route: 048
     Dates: start: 20101030, end: 20101030
  2. HIDANTAL [Concomitant]
     Indication: CONVULSION PROPHYLAXIS
     Dosage: UNIT DOSE: 100 MG
     Route: 048
     Dates: start: 20100905

REACTIONS (2)
  - DYSPNOEA [None]
  - OROPHARYNGEAL SWELLING [None]
